FAERS Safety Report 8226764-7 (Version None)
Quarter: 2012Q1

REPORT INFORMATION
  Report Type: 
  Country: None (occurrence: None)
  Receive Date: 20120322
  Receipt Date: 20120315
  Transmission Date: 20120608
  Serious: Yes (Other)
  Sender: FDA-Public Use
  Company Number: US-BAYER-2012-026133

PATIENT
  Age: 53 Year
  Sex: Female
  Weight: 73 kg

DRUGS (2)
  1. OMEPRAZOLE [Concomitant]
  2. ALKA-SELTZER PLUS COLD FORMULA ORANGE ZEST [Suspect]
     Indication: NASOPHARYNGITIS
     Dosage: 2 DF, ONCE
     Route: 048
     Dates: start: 20120212, end: 20120212

REACTIONS (3)
  - URTICARIA [None]
  - HYPERSENSITIVITY [None]
  - EYE SWELLING [None]
